FAERS Safety Report 11429047 (Version 1)
Quarter: 2015Q3

REPORT INFORMATION
  Report Type: Spontaneous
  Country: US (occurrence: US)
  Receive Date: 20150828
  Receipt Date: 20150828
  Transmission Date: 20151125
  Serious: Yes (Hospitalization)
  Sender: FDA-Public Use
  Company Number: US-ROCHE-1220276

PATIENT
  Age: 44 Year
  Sex: Female
  Weight: 53.57 kg

DRUGS (8)
  1. FLAXSEED [Concomitant]
     Active Substance: FLAX SEED
  2. CALTRATE [Concomitant]
     Active Substance: CALCIUM CARBONATE
  3. COPEGUS [Suspect]
     Active Substance: RIBAVIRIN
     Indication: CHRONIC HEPATITIS C
     Dosage: DIVIDED DOSE 600/400 MG
     Route: 065
     Dates: start: 20121228
  4. TELAPREVIR [Suspect]
     Active Substance: TELAPREVIR
     Indication: CHRONIC HEPATITIS C
     Route: 065
     Dates: start: 20121228
  5. OMEPRAZOLE. [Concomitant]
     Active Substance: OMEPRAZOLE
     Route: 065
     Dates: start: 201303
  6. FISH OIL [Concomitant]
     Active Substance: FISH OIL
  7. PEPCID COMPLETE [Concomitant]
     Active Substance: CALCIUM CARBONATE\FAMOTIDINE\MAGNESIUM HYDROXIDE
     Route: 065
     Dates: start: 201303
  8. PEGASYS [Suspect]
     Active Substance: PEGINTERFERON ALFA-2A
     Indication: CHRONIC HEPATITIS C
     Route: 058
     Dates: start: 20121228

REACTIONS (22)
  - Alopecia [Unknown]
  - Pigmentation disorder [Unknown]
  - Rash [Unknown]
  - Haemorrhoids [Unknown]
  - Nervousness [Unknown]
  - Cough [Unknown]
  - Hair texture abnormal [Unknown]
  - Muscle atrophy [Unknown]
  - Bone disorder [Unknown]
  - Hypersensitivity [Unknown]
  - Lacrimation increased [Unknown]
  - Mass [Unknown]
  - Irritability [Unknown]
  - Laceration [Unknown]
  - Fatigue [Unknown]
  - Dizziness [Unknown]
  - Dyspepsia [Unknown]
  - Skin ulcer [Unknown]
  - Pruritus [Unknown]
  - White blood cell count decreased [Unknown]
  - Tongue disorder [Unknown]
  - Hypoaesthesia [Unknown]

NARRATIVE: CASE EVENT DATE: 201302
